FAERS Safety Report 4720743-X (Version None)
Quarter: 2005Q3

REPORT INFORMATION
  Report Type: 
  Country: None (occurrence: None)
  Receive Date: 20050719
  Receipt Date: 20050708
  Transmission Date: 20060218
  Serious: Yes (Hospitalization, Other)
  Sender: FDA-Public Use
  Company Number: 2005099106

PATIENT
  Age: 80 Year
  Sex: Female
  Weight: 73.0291 kg

DRUGS (2)
  1. LIPITOR [Suspect]
     Indication: BLOOD CHOLESTEROL
     Dosage: 10 MG (10 MG,1 IN 1 D),ORAL
     Route: 048
     Dates: start: 19970101
  2. VALSARTAN [Concomitant]

REACTIONS (7)
  - BEREAVEMENT [None]
  - BLOOD PRESSURE FLUCTUATION [None]
  - CRYING [None]
  - ECONOMIC PROBLEM [None]
  - HIGH DENSITY LIPOPROTEIN INCREASED [None]
  - KNEE OPERATION [None]
  - MUSCLE SPASMS [None]
